FAERS Safety Report 7671292-0 (Version None)
Quarter: 2011Q3

REPORT INFORMATION
  Report Type: 
  Country: None (occurrence: None)
  Receive Date: 20110809
  Receipt Date: 20110801
  Transmission Date: 20111222
  Serious: Yes (Hospitalization, Other)
  Sender: FDA-Public Use
  Company Number: US-ASTRAZENECA-2011SE41231

PATIENT
  Sex: Female

DRUGS (1)
  1. SYMBICORT [Suspect]
     Indication: DYSPNOEA
     Dosage: AEROSOL, 160/4.5 MCG, TWO INHALATIONS TWICE DAILY
     Route: 055

REACTIONS (3)
  - PNEUMONIA [None]
  - HOSPICE CARE [None]
  - LUNG NEOPLASM MALIGNANT [None]
